FAERS Safety Report 6903277-3 (Version None)
Quarter: 2010Q3

REPORT INFORMATION
  Report Type: 
  Country: None (occurrence: None)
  Receive Date: 20100803
  Receipt Date: 20080828
  Transmission Date: 20110219
  Serious: No
  Sender: FDA-Public Use
  Company Number: US-PFIZER INC-2008073491

PATIENT
  Sex: Female

DRUGS (11)
  1. LYRICA [Suspect]
     Indication: PAIN IN EXTREMITY
     Dates: start: 20080801
  2. LYRICA [Suspect]
     Indication: PARAESTHESIA
  3. LYRICA [Suspect]
     Indication: BURNING SENSATION
  4. LIPITOR [Concomitant]
  5. ACETYLSALICYLIC ACID SRT [Concomitant]
  6. MAGNESIUM [Concomitant]
  7. SYNTHROID [Concomitant]
  8. ATENOLOL [Concomitant]
  9. CYMBALTA [Concomitant]
  10. LASIX [Concomitant]
  11. GLUTAMINE [Concomitant]

REACTIONS (2)
  - PRURITUS [None]
  - URTICARIA [None]
